FAERS Safety Report 17511758 (Version 19)
Quarter: 2024Q3

REPORT INFORMATION
  Report Type: Report from Study
  Country: CO (occurrence: CO)
  Receive Date: 20200308
  Receipt Date: 20240906
  Transmission Date: 20241017
  Serious: Yes (Life-Threatening, Hospitalization, Other)
  Sender: NOVARTIS
  Company Number: NVSC2020CO024394

PATIENT
  Age: 61 Year
  Sex: Female
  Weight: 65 kg

DRUGS (11)
  1. TASIGNA [Suspect]
     Active Substance: NILOTINIB
     Indication: Chronic myeloid leukaemia
     Dosage: 300 MG, QD (DAILY)
     Route: 048
     Dates: start: 2011
  2. TASIGNA [Suspect]
     Active Substance: NILOTINIB
     Dosage: 150 MG, Q12H
     Route: 048
     Dates: start: 2011
  3. TASIGNA [Suspect]
     Active Substance: NILOTINIB
     Dosage: 300 MG, Q12H
     Route: 048
     Dates: start: 20150227
  4. TASIGNA [Suspect]
     Active Substance: NILOTINIB
     Dosage: UNK
     Route: 048
  5. TASIGNA [Suspect]
     Active Substance: NILOTINIB
     Dosage: 300 MG, Q12H (FOR 3 MONTHS)
     Route: 048
  6. TASIGNA [Suspect]
     Active Substance: NILOTINIB
     Dosage: 2 DOSAGE FORM, Q12H (OF 200 MG)
     Route: 048
  7. TASIGNA [Suspect]
     Active Substance: NILOTINIB
     Dosage: 300 MG, Q12H
     Route: 065
  8. TASIGNA [Suspect]
     Active Substance: NILOTINIB
     Dosage: 600 MG, Q12H
     Route: 048
  9. TASIGNA [Suspect]
     Active Substance: NILOTINIB
     Dosage: UNK, Q12H
     Route: 048
  10. TASIGNA [Suspect]
     Active Substance: NILOTINIB
     Dosage: 600 MG, QD
     Route: 048
  11. ACETAMINOPHEN [Concomitant]
     Active Substance: ACETAMINOPHEN
     Indication: Product used for unknown indication
     Dosage: UNK
     Route: 065

REACTIONS (43)
  - Feeling abnormal [Unknown]
  - Limb discomfort [Not Recovered/Not Resolved]
  - Blindness [Unknown]
  - Osteochondrosis [Unknown]
  - Loss of consciousness [Unknown]
  - Chronic myeloid leukaemia recurrent [Unknown]
  - Pain in extremity [Unknown]
  - Fear [Unknown]
  - Decreased immune responsiveness [Unknown]
  - Respiratory rate increased [Unknown]
  - Pelvic fluid collection [Unknown]
  - Illness [Unknown]
  - Decreased activity [Unknown]
  - Burning sensation [Unknown]
  - Osteoarthritis [Unknown]
  - Scoliosis [Unknown]
  - Pain [Unknown]
  - Erythema [Unknown]
  - Influenza [Recovered/Resolved]
  - Asthenia [Unknown]
  - Arthralgia [Unknown]
  - Hypersensitivity [Not Recovered/Not Resolved]
  - Pruritus [Recovering/Resolving]
  - Headache [Unknown]
  - Influenza [Unknown]
  - Dizziness [Unknown]
  - Pyrexia [Unknown]
  - Abdominal pain upper [Unknown]
  - Malaise [Unknown]
  - Gastritis [Unknown]
  - Skin lesion [Unknown]
  - Spinal disorder [Unknown]
  - Peripheral swelling [Unknown]
  - Gait disturbance [Unknown]
  - Diarrhoea [Unknown]
  - Vomiting [Unknown]
  - Pain [Recovered/Resolved]
  - Abdominal distension [Unknown]
  - Dry mouth [Unknown]
  - Memory impairment [Unknown]
  - Back pain [Unknown]
  - Tinnitus [Unknown]
  - Apathy [Unknown]

NARRATIVE: CASE EVENT DATE: 20190601
